FAERS Safety Report 4543144-6 (Version None)
Quarter: 2005Q1

REPORT INFORMATION
  Report Type: 
  Country: None (occurrence: None)
  Receive Date: 20050103
  Receipt Date: 20041215
  Transmission Date: 20050727
  Serious: Yes (Other)
  Sender: FDA-Public Use
  Company Number: FI-NOVOPROD-241135

PATIENT
  Age: 0 Day
  Sex: Female
  Weight: 5 kg

DRUGS (2)
  1. ACTRAPID PENFILL HM(GE) 3.0 ML [Suspect]
     Indication: DIABETES MELLITUS INSULIN-DEPENDENT
     Dosage: 31 IU, QD
     Route: 015
     Dates: start: 20040603
  2. PROTAPHAN PENFILL [Concomitant]
     Indication: DIABETES MELLITUS INSULIN-DEPENDENT
     Dosage: 90 IU, QD
     Route: 015
     Dates: start: 20040603

REACTIONS (3)
  - CAESAREAN SECTION [None]
  - DRUG EXPOSURE DURING PREGNANCY [None]
  - HYPOGLYCAEMIA NEONATAL [None]
